FAERS Safety Report 6189538-7 (Version None)
Quarter: 2009Q2

REPORT INFORMATION
  Report Type: 
  Country: None (occurrence: None)
  Receive Date: 20090514
  Receipt Date: 20090512
  Transmission Date: 20091009
  Serious: Yes (Hospitalization)
  Sender: FDA-Public Use
  Company Number: US-BIOGENIDEC-2009BI010461

PATIENT
  Age: 62 Year
  Sex: Female

DRUGS (11)
  1. TYSABRI [Suspect]
     Indication: MULTIPLE SCLEROSIS
     Route: 042
     Dates: start: 20070215
  2. TYSABRI [Suspect]
     Route: 042
     Dates: start: 20070215
  3. GABAPENTIN [Concomitant]
  4. REQUIP [Concomitant]
  5. LEXAPRO [Concomitant]
  6. PLAVIX [Concomitant]
  7. LORTAB [Concomitant]
  8. XANAX [Concomitant]
  9. NEXIUM [Concomitant]
  10. AMBIEN [Concomitant]
  11. TOPROL-XL [Concomitant]

REACTIONS (5)
  - DYSPHONIA [None]
  - HYPOAESTHESIA [None]
  - HYPOKALAEMIA [None]
  - INTERVERTEBRAL DISC DEGENERATION [None]
  - PARAESTHESIA [None]
